FAERS Safety Report 4321042-0 (Version None)
Quarter: 2004Q1

REPORT INFORMATION
  Report Type: 
  Country: None (occurrence: None)
  Receive Date: 20040322
  Receipt Date: 20040315
  Transmission Date: 20041129
  Serious: Yes (Life-Threatening, Hospitalization)
  Sender: FDA-Public Use
  Company Number: PHFR2004GB01392

PATIENT
  Sex: Male

DRUGS (3)
  1. RIVASTIGMINE [Suspect]
     Indication: DEMENTIA
     Dosage: 6 MG, BID
     Route: 048
     Dates: start: 20010101
  2. RISPERIDONE [Concomitant]
     Dosage: 1 MG, BID
     Route: 048
  3. LACTULOSE [Concomitant]
     Dosage: 10 ML, PRN
     Route: 048

REACTIONS (2)
  - GASTRIC ULCER PERFORATION [None]
  - GASTROINTESTINAL ULCER PERFORATION [None]
